FAERS Safety Report 5196484-4 (Version None)
Quarter: 2006Q4

REPORT INFORMATION
  Report Type: 
  Country: None (occurrence: None)
  Receive Date: 20061227
  Receipt Date: 20061211
  Transmission Date: 20070319
  Serious: Yes (Other)
  Sender: FDA-Public Use
  Company Number: 2006JP005256

PATIENT
  Age: 4 Year
  Sex: Female

DRUGS (2)
  1. PROGRAF [Suspect]
     Indication: BONE MARROW TRANSPLANT
     Dosage: UNK, UNK, UNKNOWN
  2. METHOTREXAT FORMULATION UNKNOWN [Concomitant]

REACTIONS (2)
  - COLITIS ULCERATIVE [None]
  - CONVULSION [None]
